FAERS Safety Report 18937956 (Version 2)
Quarter: 2021Q1

REPORT INFORMATION
  Report Type: Spontaneous
  Country: US (occurrence: US)
  Receive Date: 20210225
  Receipt Date: 20210316
  Transmission Date: 20210420
  Serious: Yes (Other)
  Sender: FDA-Public Use
  Company Number: US-HIKMA PHARMACEUTICALS USA INC.-US-H14001-21-53719

PATIENT
  Age: 46 Year
  Sex: Female

DRUGS (1)
  1. METHOTREXATE. [Suspect]
     Active Substance: METHOTREXATE
     Indication: PSORIASIS
     Dosage: UNKNOWN
     Route: 048
     Dates: start: 201003, end: 201206

REACTIONS (5)
  - Steatohepatitis [Unknown]
  - Hepatic fibrosis [Unknown]
  - Alanine aminotransferase increased [Unknown]
  - Portal fibrosis [Unknown]
  - Portal tract inflammation [Unknown]

NARRATIVE: CASE EVENT DATE: 201205
